FAERS Safety Report 5135963-2 (Version None)
Quarter: 2006Q4

REPORT INFORMATION
  Report Type: 
  Country: None (occurrence: None)
  Receive Date: 20061020
  Receipt Date: 20061006
  Transmission Date: 20070319
  Serious: Yes (Hospitalization)
  Sender: FDA-Public Use
  Company Number: S06-FRA-04267-01

PATIENT
  Age: 90 Year
  Sex: Female

DRUGS (9)
  1. SEROPRAM (CITALOPRAM HYDROBROMIDE) [Suspect]
     Dates: start: 20060901, end: 20060901
  2. ZOLPIDEM TARTRATE [Concomitant]
  3. CALCIUM [Concomitant]
  4. KARDEGIC (ACETYLSALICYATE LYSINE) [Concomitant]
  5. BISOPROLOL FUMARATE [Concomitant]
  6. LIPANTHYL (FENOFIBRATE) [Concomitant]
  7. ACETAMINOPHEN W/ PROPOXYPHENE HCL [Concomitant]
  8. RABEPRAZOLE SODIUM [Concomitant]
  9. CIPROFLOXACIN [Concomitant]

REACTIONS (2)
  - CONFUSIONAL STATE [None]
  - HYPONATRAEMIA [None]
